FAERS Safety Report 5224027-5 (Version None)
Quarter: 2007Q1

REPORT INFORMATION
  Report Type: 
  Country: None (occurrence: None)
  Receive Date: 20070130
  Receipt Date: 20070119
  Transmission Date: 20070707
  Serious: Yes (Other)
  Sender: FDA-Public Use
  Company Number: GR-ROCHE-479526

PATIENT
  Sex: Male

DRUGS (2)
  1. PEGASYS [Suspect]
     Indication: HEPATITIS C
     Route: 058
  2. COPEGUS [Suspect]
     Indication: HEPATITIS C
     Route: 048

REACTIONS (2)
  - DERMATITIS ALLERGIC [None]
  - MUSCLE ENZYME INCREASED [None]
